FAERS Safety Report 5886848-5 (Version None)
Quarter: 2008Q3

REPORT INFORMATION
  Report Type: 
  Country: None (occurrence: None)
  Receive Date: 20080915
  Receipt Date: 20080825
  Transmission Date: 20090109
  Serious: Yes (Death)
  Sender: FDA-Public Use
  Company Number: 2008EU001782

PATIENT
  Age: 17 Year
  Sex: Male

DRUGS (23)
  1. PROTOPIC [Suspect]
     Indication: GRAFT VERSUS HOST DISEASE
     Dosage: UNKNOWN/D, TOPICAL
     Route: 061
     Dates: start: 20070701
  2. METHOTREXATE [Suspect]
     Indication: GRAFT VERSUS HOST DISEASE
     Dosage: 20 MG, WEEKLY
     Dates: start: 20050801
  3. SANDOGLOBULIN [Suspect]
     Indication: LYMPHOPENIA
     Dosage: 1.285 G, UID/QD, IV NOS; 10 G, UNKNOWN/D, IV NOS
     Route: 042
     Dates: start: 20061201
  4. SANDOGLOBULIN [Suspect]
     Indication: LYMPHOPENIA
     Dosage: 1.285 G, UID/QD, IV NOS; 10 G, UNKNOWN/D, IV NOS
     Route: 042
     Dates: start: 20080122
  5. SANDOGLOBULIN [Suspect]
     Dosage: 3 G, UNKNOWN/D, IV NOS
     Route: 042
     Dates: start: 20080122
  6. SANDOGLOBULIN [Suspect]
     Dosage: 10 G, UNKNOWN/D, IV BOLUS
     Route: 042
     Dates: start: 20080212
  7. SANDOGLOBULIN [Suspect]
     Dosage: 3 G, UNKNOWN/D, IV NOS
     Route: 042
     Dates: start: 20080212
  8. SANDOGLOBULIN [Suspect]
     Dosage: 10 G, UNKNOWN/D, IV NOS
     Route: 042
     Dates: start: 20080305
  9. SANDOGLOBULIN [Suspect]
     Dosage: 3 G, UNKNOWN/D, IV NOS
     Route: 042
     Dates: start: 20080305
  10. SANDOGLOBULIN [Suspect]
     Dosage: 10 G, UNKNOWN/D, IV NOS
     Route: 042
     Dates: start: 20080325
  11. SANDOGLOBULIN [Suspect]
     Dosage: 3 G, UNKNOWN/D, IV NOS
     Route: 042
     Dates: start: 20080325
  12. PENTACARINAT [Suspect]
     Dosage: CYCLIC
     Dates: start: 20070401
  13. RAPAMUNE [Suspect]
     Indication: GRAFT VERSUS HOST DISEASE
     Dosage: UNKNOWN/D, UNKNOWN
     Dates: start: 20080402
  14. MYCOPHENOLIC ACID [Suspect]
     Indication: GRAFT VERSUS HOST DISEASE
     Dosage: 3 DF, UID/QD, UNKNOWN
     Dates: start: 20070115
  15. MOPRAL [Concomitant]
  16. VALACYCLOVIR HCL [Concomitant]
  17. CLARITHROMYCIN [Concomitant]
  18. CSRDENSIEL (BISOPROLOL FUMARATE) [Concomitant]
  19. URSOLVAN (URSODEOXYCHOLIC ACID) [Concomitant]
  20. BETAMETHASONE [Concomitant]
  21. LASILIX (FUROSEMIDE SODIUM) [Concomitant]
  22. ALDACTONE [Concomitant]
  23. BISOPROLOL FUMARATE [Concomitant]

REACTIONS (5)
  - ELECTROMECHANICAL DISSOCIATION [None]
  - INFARCTION [None]
  - MITRAL VALVE INCOMPETENCE [None]
  - PERICARDIAL EFFUSION [None]
  - SHOCK [None]
